FAERS Safety Report 19203920 (Version 1)
Quarter: 2021Q2

REPORT INFORMATION
  Report Type: Report from Study
  Country: CA (occurrence: CA)
  Receive Date: 20210503
  Receipt Date: 20210503
  Transmission Date: 20210717
  Serious: Yes (Other)
  Sender: FDA-Public Use
  Company Number: CA-JNJFOC-20190802849

PATIENT
  Age: 21 Year
  Sex: Male
  Weight: 87 kg

DRUGS (3)
  1. METRONIDAZOLE. [Concomitant]
     Active Substance: METRONIDAZOLE
     Indication: PRODUCT USED FOR UNKNOWN INDICATION
     Route: 065
  2. REMICADE [Suspect]
     Active Substance: INFLIXIMAB
     Indication: CROHN^S DISEASE
     Dosage: LAST INFUSION WAS ON 16/NOV/2020
     Route: 042
     Dates: start: 20180720
  3. REMICADE [Suspect]
     Active Substance: INFLIXIMAB
     Indication: COLITIS ULCERATIVE
     Route: 042
     Dates: start: 20201214

REACTIONS (6)
  - Product dose omission issue [Unknown]
  - Off label use [Unknown]
  - Suspected COVID-19 [Unknown]
  - Crohn^s disease [Recovering/Resolving]
  - Colitis ulcerative [Recovering/Resolving]
  - Product use issue [Unknown]

NARRATIVE: CASE EVENT DATE: 20180720
